FAERS Safety Report 15172845 (Version 2)
Quarter: 2018Q3

REPORT INFORMATION
  Report Type: Spontaneous
  Country: US (occurrence: US)
  Receive Date: 20180720
  Receipt Date: 20180828
  Transmission Date: 20181010
  Serious: No
  Sender: FDA-Public Use
  Company Number: US-GILEAD-2018-0350678

PATIENT
  Age: 77 Year
  Sex: Female
  Weight: 82.54 kg

DRUGS (10)
  1. NITROFURANTOIN. [Concomitant]
     Active Substance: NITROFURANTOIN
     Dosage: UNK
     Dates: start: 20180601, end: 20180608
  2. OXYBUTYNIN. [Concomitant]
     Active Substance: OXYBUTYNIN CHLORIDE
  3. VITAMIN D                          /00107901/ [Concomitant]
     Active Substance: ERGOCALCIFEROL
  4. MYRBETRIQ [Concomitant]
     Active Substance: MIRABEGRON
  5. HARVONI [Suspect]
     Active Substance: LEDIPASVIR\SOFOSBUVIR
     Indication: HEPATITIS C
     Dosage: 1 DF, UNK
     Route: 048
     Dates: start: 20180607
  6. FLAXSEED OIL                       /01649403/ [Concomitant]
  7. PANTOPRAZOLE [Suspect]
     Active Substance: PANTOPRAZOLE
     Indication: OESOPHAGITIS
     Dosage: 40 MG, UNK
     Route: 065
     Dates: start: 20180619, end: 20180716
  8. LISINOPRIL. [Concomitant]
     Active Substance: LISINOPRIL
  9. METOPROLOL. [Concomitant]
     Active Substance: METOPROLOL
  10. CALTRATE                           /00944201/ [Concomitant]
     Active Substance: CALCIUM CARBONATE\CHOLECALCIFEROL

REACTIONS (1)
  - Oesophagitis [Unknown]

NARRATIVE: CASE EVENT DATE: 20180619
